FAERS Safety Report 19184551 (Version 1)
Quarter: 2021Q2

REPORT INFORMATION
  Report Type: Report from Study
  Country: US (occurrence: US)
  Receive Date: 20210427
  Receipt Date: 20210427
  Transmission Date: 20210717
  Serious: Yes (Other)
  Sender: FDA-Public Use
  Company Number: US-BAUSCH-BL-2021-001163

PATIENT
  Age: 18 Year
  Sex: Female

DRUGS (1)
  1. SYPRINE [Suspect]
     Active Substance: TRIENTINE HYDROCHLORIDE
     Indication: PRODUCT USED FOR UNKNOWN INDICATION
     Dosage: DOSING INFORMATION:1000MG
     Route: 065

REACTIONS (6)
  - Hepatic fibrosis [Unknown]
  - Stress [Unknown]
  - Product storage error [Unknown]
  - Mental disorder [Unknown]
  - Product dose omission in error [Unknown]
  - Treatment noncompliance [Unknown]

NARRATIVE: CASE EVENT DATE: 2020
